FAERS Safety Report 24187090 (Version 2)
Quarter: 2024Q3

REPORT INFORMATION
  Report Type: Spontaneous
  Country: US (occurrence: US)
  Receive Date: 20240808
  Receipt Date: 20240820
  Transmission Date: 20241016
  Serious: No
  Sender: DR REDDYS
  Company Number: US-E2BLSMVVAL-SPO/USA/24/0011424

PATIENT
  Sex: Female

DRUGS (1)
  1. NICOTINE TRANSDERMAL SYSTEM [Suspect]
     Active Substance: NICOTINE
     Indication: Smoking cessation therapy
     Route: 062
     Dates: start: 20231025

REACTIONS (3)
  - Skin irritation [Unknown]
  - Product adhesion issue [Unknown]
  - Wrong technique in product usage process [Unknown]
